FAERS Safety Report 6171478-0 (Version None)
Quarter: 2009Q2

REPORT INFORMATION
  Report Type: 
  Country: None (occurrence: None)
  Receive Date: 20090429
  Receipt Date: 20090420
  Transmission Date: 20091009
  Serious: Yes (Other)
  Sender: FDA-Public Use
  Company Number: DE-PFIZER INC-2008032240

PATIENT

DRUGS (1)
  1. SUNITINIB MALATE [Suspect]
     Indication: GASTROINTESTINAL STROMAL TUMOUR
     Dosage: 25 MG, 1X/DAY
     Route: 048
     Dates: start: 20060722

REACTIONS (3)
  - ABDOMINAL PAIN [None]
  - ASTHENIA [None]
  - HYPERVENTILATION [None]
